FAERS Safety Report 8758334 (Version 2)
Quarter: 2012Q4

REPORT INFORMATION
  Report Type: 
  Country: AR (occurrence: AR)
  Receive Date: 20120829
  Receipt Date: 20120911
  Transmission Date: 20130627
  Serious: Yes (Other)
  Sender: FDA-Public Use
  Company Number: AR-AMGEN-ARGSP2012054154

PATIENT
  Age: 39 Year
  Sex: Female

DRUGS (9)
  1. ENBREL [Suspect]
     Indication: RHEUMATOID ARTHRITIS
     Dosage: 50 mg, weekly
     Route: 058
     Dates: start: 20101202, end: 201201
  2. ENBREL [Suspect]
     Dosage: UNK
     Dates: start: 201202, end: 201207
  3. ENBREL [Suspect]
     Dosage: UNK
     Dates: start: 201208
  4. METHOTREXATE SODIUM [Concomitant]
     Dosage: UNK
  5. DICLOFENAC [Concomitant]
     Dosage: UNK
  6. FOLIC ACID [Concomitant]
     Dosage: UNK
  7. ANEMIDOX                           /01478701/ [Concomitant]
     Dosage: UNK
  8. PREDNISONE [Concomitant]
     Dosage: UNK
  9. OMEPRAZOL                          /00661201/ [Concomitant]
     Dosage: UNK

REACTIONS (4)
  - Cholelithiasis [Recovered/Resolved]
  - Spinal disorder [Recovered/Resolved]
  - Application site pain [Not Recovered/Not Resolved]
  - Infection [Recovered/Resolved]
